FAERS Safety Report 18223615 (Version 2)
Quarter: 2023Q1

REPORT INFORMATION
  Report Type: Spontaneous
  Country: CO (occurrence: CO)
  Receive Date: 20200902
  Receipt Date: 20230113
  Transmission Date: 20230417
  Serious: Yes (Hospitalization, Other)
  Sender: FDA-Public Use
  Company Number: CO-LUPIN PHARMACEUTICALS INC.-2020-05300

PATIENT
  Age: 16 Year
  Sex: Male

DRUGS (6)
  1. CALCIUM ACETATE [Suspect]
     Active Substance: CALCIUM ACETATE
     Indication: Product used for unknown indication
     Dosage: UNK 30 MILLILITER (BOLUS)
     Route: 065
  2. DOXYCYCLINE [Suspect]
     Active Substance: DOXYCYCLINE
     Indication: Product used for unknown indication
     Dosage: 10 DOSAGE FORM, SINGLE (VOLUNTARILY INGESTED 10 TABLETS OF DOXYCYCLINE) TABLET
     Route: 048
  3. ACETAMINOPHEN [Suspect]
     Active Substance: ACETAMINOPHEN
     Indication: Product used for unknown indication
     Dosage: 24 DOSAGE FORM, SINGLE ((VOLUNTARILY INGESTED 24 TABLETS OF ACETAMINOPHEN)
     Route: 048
  4. PROPRANOLOL [Suspect]
     Active Substance: PROPRANOLOL HYDROCHLORIDE
     Indication: Product used for unknown indication
     Dosage: 30 DOSAGE FORM, SINGLE ( (30 DOSAGE FORM (VOLUNTARILY INGESTED 30 TABLETS OF PROPRANOLOL)
     Route: 048
  5. ACETYLCYSTEINE [Suspect]
     Active Substance: ACETYLCYSTEINE
     Indication: Product used for unknown indication
     Dosage: UNK (50MG/KG WAS STARTED FOR 4 HOURS)
     Route: 065
  6. ACETYLCYSTEINE [Suspect]
     Active Substance: ACETYLCYSTEINE
     Dosage: UNK (100MG/KG FOR 16 HOURS)
     Route: 065

REACTIONS (4)
  - Intentional overdose [Unknown]
  - Bradycardia [Recovered/Resolved]
  - Atrioventricular block first degree [Recovered/Resolved]
  - Drug ineffective [Unknown]
